FAERS Safety Report 10505293 (Version 1)
Quarter: 2014Q3

REPORT INFORMATION
  Report Type: Spontaneous
  Country: US (occurrence: None)
  Receive Date: 20140915
  Receipt Date: 20140915
  Transmission Date: 20150326
  Serious: Yes (Other)
  Sender: FDA-Public Use
  Company Number: PHEH2013US024794

PATIENT
  Age: 72 Year
  Sex: Female

DRUGS (5)
  1. METOPROLOL [Concomitant]
     Active Substance: METOPROLOL
  2. CELEBREX [Concomitant]
     Active Substance: CELECOXIB
  3. TRAMADOL (TRAMADOL) [Concomitant]
     Active Substance: TRAMADOL
  4. DIOVAN [Suspect]
     Active Substance: VALSARTAN
     Indication: HYPERTENSION
     Route: 048
  5. HYDROCHLOROTHIAZID (HYDROCHLOROTHIAZID) [Concomitant]

REACTIONS (1)
  - Hypertension [None]
